FAERS Safety Report 4610227-1 (Version None)
Quarter: 2005Q1

REPORT INFORMATION
  Report Type: 
  Country: None (occurrence: None)
  Receive Date: 20050314
  Receipt Date: 20050225
  Transmission Date: 20050727
  Serious: Yes (Hospitalization)
  Sender: FDA-Public Use
  Company Number: 2000-BP-02072

PATIENT
  Age: 31 Year
  Sex: Female
  Weight: 75 kg

DRUGS (6)
  1. NEVIRAPINE [Suspect]
     Indication: HIV INFECTION
     Dosage: 400 MG (200 MG), PO
     Route: 048
     Dates: start: 20000921
  2. EMTRICITABINE (BLINDED) [Suspect]
     Indication: HIV INFECTION
     Dosage: 200 MG (200 MG), PO
     Route: 048
     Dates: start: 20000921
  3. STAVUDINE [Suspect]
     Indication: HIV INFECTION
     Dosage: 300 MG (NR), PO
     Route: 048
     Dates: start: 20000921
  4. LAMIVUDINE (BLINDED) (LAMIVUDINE) [Concomitant]
  5. TRETINOIN [Concomitant]
  6. MICRONAZELAIC ACID [Concomitant]

REACTIONS (4)
  - ABORTION MISSED [None]
  - BLIGHTED OVUM [None]
  - DRUG EXPOSURE DURING PREGNANCY [None]
  - PREGNANCY [None]
